FAERS Safety Report 12496710 (Version 1)
Quarter: 2016Q2

REPORT INFORMATION
  Report Type: Other
  Country: DE (occurrence: DE)
  Receive Date: 20160624
  Receipt Date: 20160624
  Transmission Date: 20160815
  Serious: Yes (Other)
  Sender: FDA-Public Use
  Company Number: DE-CIPLA LTD.-2016DE08125

PATIENT

DRUGS (6)
  1. POTASSIUM-CONTAINING DRUG [Suspect]
     Active Substance: POTASSIUM
     Dosage: UNK
     Route: 065
  2. QUETIAPINE. [Suspect]
     Active Substance: QUETIAPINE
     Indication: MENTAL DISORDER
     Dosage: UNK
     Route: 065
  3. LAMOTRIGINE. [Suspect]
     Active Substance: LAMOTRIGINE
     Indication: EPILEPSY
     Dosage: 50 MG / TG., UNK
     Route: 065
  4. AMBROXOL [Suspect]
     Active Substance: AMBROXOL
     Indication: CHRONIC OBSTRUCTIVE PULMONARY DISEASE
     Dosage: UNK
     Route: 065
  5. ACETYLCYSTEINE. [Suspect]
     Active Substance: ACETYLCYSTEINE
     Indication: CHRONIC OBSTRUCTIVE PULMONARY DISEASE
     Dosage: UNK
     Route: 065
  6. LAMOTRIGINE. [Suspect]
     Active Substance: LAMOTRIGINE
     Dosage: 12.5 MG / TG., UNK
     Route: 065

REACTIONS (10)
  - Stevens-Johnson syndrome [Unknown]
  - Lip swelling [Unknown]
  - Anal erosion [Unknown]
  - Conjunctivitis [Unknown]
  - Cardiovascular disorder [Unknown]
  - Rash generalised [Unknown]
  - Eyelid function disorder [Unknown]
  - Lip erosion [Unknown]
  - Genital erosion [Unknown]
  - Skin erosion [Unknown]
